FAERS Safety Report 18714000 (Version 2)
Quarter: 2021Q1

REPORT INFORMATION
  Report Type: Spontaneous
  Country: CA (occurrence: CA)
  Receive Date: 20210107
  Receipt Date: 20210115
  Transmission Date: 20210419
  Serious: Yes (Other)
  Sender: FDA-Public Use
  Company Number: CA-ASTRAZENECA-2020SF63485

PATIENT
  Age: 22148 Day
  Sex: Female
  Weight: 97.5 kg

DRUGS (5)
  1. GABAPENTIN. [Concomitant]
     Active Substance: GABAPENTIN
  2. CALQUENCE [Suspect]
     Active Substance: ACALABRUTINIB
     Indication: CHRONIC LYMPHOCYTIC LEUKAEMIA
     Route: 048
  3. SUBOXONE [Concomitant]
     Active Substance: BUPRENORPHINE HYDROCHLORIDE\NALOXONE HYDROCHLORIDE
  4. IBRUTINIB [Concomitant]
     Active Substance: IBRUTINIB
  5. PREDNISONE. [Concomitant]
     Active Substance: PREDNISONE

REACTIONS (16)
  - Musculoskeletal stiffness [Unknown]
  - Panic disorder [Recovering/Resolving]
  - Hypohidrosis [Recovering/Resolving]
  - Headache [Recovering/Resolving]
  - Nervousness [Recovering/Resolving]
  - Feeling jittery [Unknown]
  - Product dose omission in error [Unknown]
  - Chest discomfort [Not Recovered/Not Resolved]
  - Migraine [Unknown]
  - Somnolence [Unknown]
  - Tremor [Recovering/Resolving]
  - Muscle strain [Unknown]
  - Hyperventilation [Recovering/Resolving]
  - Feeling abnormal [Unknown]
  - Withdrawal syndrome [Unknown]
  - Pulmonary congestion [Unknown]

NARRATIVE: CASE EVENT DATE: 20200913
